FAERS Safety Report 11030722 (Version 1)
Quarter: 2015Q2

REPORT INFORMATION
  Report Type: Spontaneous
  Country: US (occurrence: None)
  Receive Date: 20150414
  Receipt Date: 20150414
  Transmission Date: 20150821
  Serious: Yes (Other)
  Sender: FDA-Public Use
  Company Number: None

PATIENT
  Age: 61 Year
  Sex: Female
  Weight: 77.57 kg

DRUGS (13)
  1. LEVETIRACETAM. [Concomitant]
     Active Substance: LEVETIRACETAM
  2. MULTIVITAMIN [Concomitant]
     Active Substance: VITAMINS
  3. OCUVITE [Concomitant]
     Active Substance: VITAMINS
  4. ADVAIR HFA [Concomitant]
     Active Substance: FLUTICASONE PROPIONATE\SALMETEROL XINAFOATE
  5. VITAMIN B COMPLEX [Concomitant]
     Active Substance: CYANOCOBALAMIN\DEXPANTHENOL\NIACINAMIDE\PYRIDOXINE HYDROCHLORIDE\RIBOFLAVIN 5^-PHOSPHATE SODIUM\THIAMINE HYDROCHLORIDE\VITAMIN B COMPLEX
  6. LAMOTRIGINE. [Suspect]
     Active Substance: LAMOTRIGINE
     Indication: SEIZURE
     Dosage: SEE NOTE  TITRATING DOSE
     Route: 048
     Dates: start: 20150225, end: 20150319
  7. AMBIEN [Concomitant]
     Active Substance: ZOLPIDEM TARTRATE
  8. FEXOFENADINE (ALLEGRA) [Concomitant]
  9. VITAMIN D3 (IN CALCIUM) [Concomitant]
  10. ZANTAC [Concomitant]
     Active Substance: RANITIDINE HYDROCHLORIDE
  11. NASACORT AQ [Concomitant]
     Active Substance: TRIAMCINOLONE ACETONIDE
  12. RECLAST [Concomitant]
     Active Substance: ZOLEDRONIC ACID
  13. CALCIUM [Concomitant]
     Active Substance: CALCIUM

REACTIONS (3)
  - Genital rash [None]
  - Rash macular [None]
  - Rash [None]

NARRATIVE: CASE EVENT DATE: 20150319
